FAERS Safety Report 5305478-7 (Version None)
Quarter: 2007Q2

REPORT INFORMATION
  Report Type: 
  Country: None (occurrence: None)
  Receive Date: 20070424
  Receipt Date: 20060707
  Transmission Date: 20071010
  Serious: No
  Sender: FDA-Public Use
  Company Number: US-GLAXOSMITHKLINE-A0611433A

PATIENT
  Sex: Female

DRUGS (2)
  1. SEREVENT [Suspect]
     Indication: BRONCHITIS
     Dosage: 1PUFF TWICE PER DAY
     Route: 055
  2. NO CONCURRENT MEDICATION [Concomitant]

REACTIONS (1)
  - HEADACHE [None]
